FAERS Safety Report 16772350 (Version 1)
Quarter: 2019Q4

REPORT INFORMATION
  Report Type: Spontaneous
  Country: US (occurrence: US)
  Receive Date: 20190904
  Receipt Date: 20190904
  Transmission Date: 20200122
  Serious: Yes (Disabling)
  Sender: FDA-Public Use
  Company Number: None

PATIENT
  Age: 71 Year
  Sex: Male
  Weight: 83.25 kg

DRUGS (2)
  1. VITAMIN D [Concomitant]
     Active Substance: VITAMIN D NOS
  2. ROPIVACAINE. [Suspect]
     Active Substance: ROPIVACAINE HYDROCHLORIDE
     Indication: POSTOPERATIVE ANALGESIA
     Dates: start: 20190515

REACTIONS (5)
  - Peroneal nerve palsy [None]
  - Gait disturbance [None]
  - Muscular weakness [None]
  - Paresis [None]
  - Neurotoxicity [None]

NARRATIVE: CASE EVENT DATE: 20190515
